FAERS Safety Report 4679905-2 (Version None)
Quarter: 2005Q2

REPORT INFORMATION
  Report Type: 
  Country: None (occurrence: None)
  Receive Date: 20050602
  Receipt Date: 20050518
  Transmission Date: 20051028
  Serious: Yes (Other)
  Sender: FDA-Public Use
  Company Number: DKLU1015617

PATIENT
  Age: 23 Year
  Sex: Male

DRUGS (2)
  1. PARACETAMOL [Suspect]
     Route: 048
  2. CIPRAMIL [Suspect]
     Dosage: 20MG PER DAY
     Route: 048

REACTIONS (3)
  - HEPATIC FUNCTION ABNORMAL [None]
  - MULTIPLE DRUG OVERDOSE [None]
  - OVERDOSE [None]
